FAERS Safety Report 7374650-7 (Version None)
Quarter: 2011Q1

REPORT INFORMATION
  Report Type: 
  Country: None (occurrence: None)
  Receive Date: 20110325
  Receipt Date: 20100809
  Transmission Date: 20110831
  Serious: No
  Sender: FDA-Public Use
  Company Number: US-MYLANLABS-2010S1010796

PATIENT
  Age: 65 Year
  Sex: Male
  Weight: 81.65 kg

DRUGS (8)
  1. OXYCODONE [Concomitant]
     Dosage: 10MG/325MG
  2. PERCOCET [Concomitant]
     Dosage: 10MG/325MG
  3. NEXIUM [Concomitant]
  4. FENTANYL-100 [Suspect]
     Indication: PAIN
     Dosage: CHANGED PATCHES EVERY 2 DAYS
     Route: 062
     Dates: start: 20080101
  5. FENTANYL-100 [Suspect]
     Indication: BACK PAIN
     Dosage: CHANGED PATCHES EVERY 2 DAYS
     Route: 062
     Dates: start: 20080101
  6. ENALAPRIL MALEATE [Concomitant]
  7. MUSCLE RELAXANTS [Concomitant]
  8. FLEXERIL [Concomitant]

REACTIONS (3)
  - PAIN [None]
  - DRUG EFFECT DECREASED [None]
  - DRUG WITHDRAWAL SYNDROME [None]
